FAERS Safety Report 16997422 (Version 2)
Quarter: 2019Q4

REPORT INFORMATION
  Report Type: Spontaneous
  Country: US (occurrence: US)
  Receive Date: 20191105
  Receipt Date: 20191106
  Transmission Date: 20200122
  Serious: Yes (Other)
  Sender: FDA-Public Use
  Company Number: US-CELGENEUS-USA-20191100118

PATIENT
  Sex: Male
  Weight: 127 kg

DRUGS (1)
  1. REVLIMID [Suspect]
     Active Substance: LENALIDOMIDE
     Indication: PLASMA CELL MYELOMA
     Dosage: 5 MILLIGRAM
     Route: 048
     Dates: start: 20190930

REACTIONS (6)
  - Muscle spasms [Unknown]
  - Constipation [Unknown]
  - Somnolence [Unknown]
  - Deafness [Unknown]
  - Ocular hyperaemia [Unknown]
  - Lacrimation increased [Unknown]
